FAERS Safety Report 6967948-5 (Version None)
Quarter: 2010Q3

REPORT INFORMATION
  Report Type: 
  Country: None (occurrence: None)
  Receive Date: 20100907
  Receipt Date: 20100827
  Transmission Date: 20110219
  Serious: Yes (Hospitalization)
  Sender: FDA-Public Use
  Company Number: US-BAXTER-2010BH016343

PATIENT
  Age: 62 Year
  Sex: Male
  Weight: 150 kg

DRUGS (31)
  1. GAMMAGARD LIQUID [Suspect]
     Indication: MYASTHENIA GRAVIS
     Route: 042
     Dates: start: 20100217
  2. GAMMAGARD LIQUID [Suspect]
     Indication: OFF LABEL USE
     Route: 042
     Dates: start: 20100217
  3. GAMMAGARD LIQUID [Suspect]
     Route: 042
     Dates: start: 20100517, end: 20100517
  4. GAMMAGARD LIQUID [Suspect]
     Route: 042
     Dates: start: 20100517, end: 20100517
  5. GAMMAGARD LIQUID [Suspect]
     Route: 042
     Dates: start: 20100518, end: 20100518
  6. GAMMAGARD LIQUID [Suspect]
     Route: 042
     Dates: start: 20100518, end: 20100518
  7. GAMMAGARD LIQUID [Suspect]
     Route: 042
     Dates: start: 20100519, end: 20100519
  8. GAMMAGARD LIQUID [Suspect]
     Route: 042
     Dates: start: 20100519, end: 20100519
  9. PRILOSEC [Concomitant]
     Route: 048
  10. SINGULAIR [Concomitant]
     Route: 048
  11. ALLEGRA [Concomitant]
     Route: 048
  12. FLONASE [Concomitant]
     Route: 045
  13. NAPROXEN [Concomitant]
     Route: 048
  14. EZETIMIBE [Concomitant]
     Route: 048
  15. SIMVASTATIN [Concomitant]
     Route: 048
  16. STARLIX [Concomitant]
     Route: 048
  17. GLUCOPHAGE [Concomitant]
     Route: 048
  18. ACTOS [Concomitant]
     Route: 048
  19. LANTUS [Concomitant]
     Route: 058
  20. LOTENSIN [Concomitant]
     Route: 048
  21. ASPIRINE [Concomitant]
     Route: 048
  22. SINEMET [Concomitant]
     Route: 048
  23. MESTINON [Concomitant]
     Route: 048
  24. CELLCEPT [Concomitant]
     Route: 048
  25. CALCIUM WITH VITAMIN D [Concomitant]
     Route: 048
  26. VITAMIN D [Concomitant]
     Route: 048
  27. ANTIDEPRESSANTS [Concomitant]
     Route: 048
  28. WELLBUTRIN [Concomitant]
     Route: 048
  29. DESYREL [Concomitant]
     Route: 048
  30. XANAX [Concomitant]
  31. MULTI-VITAMINS [Concomitant]
     Route: 048

REACTIONS (8)
  - CHILLS [None]
  - CONDITION AGGRAVATED [None]
  - DIARRHOEA [None]
  - PYREXIA [None]
  - RED BLOOD CELL COUNT DECREASED [None]
  - TACHYCARDIA [None]
  - VOMITING [None]
  - WHITE BLOOD CELL COUNT INCREASED [None]
